FAERS Safety Report 19740464 (Version 1)
Quarter: 2021Q3

REPORT INFORMATION
  Report Type: Spontaneous
  Country: FR (occurrence: FR)
  Receive Date: 20210824
  Receipt Date: 20210824
  Transmission Date: 20211014
  Serious: Yes (Life-Threatening)
  Sender: FDA-Public Use
  Company Number: FR-ACCORD-235975

PATIENT
  Age: 72 Year
  Sex: Female

DRUGS (9)
  1. SEROPLEX [Concomitant]
     Active Substance: ESCITALOPRAM OXALATE
     Indication: ANXIETY
  2. ATROPINE. [Suspect]
     Active Substance: ATROPINE
     Indication: CARDIAC STRESS TEST
     Route: 042
     Dates: start: 20210602, end: 20210602
  3. BISOPROLOL [Concomitant]
     Active Substance: BISOPROLOL
     Indication: HYPERTENSION
  4. LEVOTHYROX [Concomitant]
     Active Substance: LEVOTHYROXINE
     Indication: THYROID DISORDER
  5. KARDEGIC [Concomitant]
     Active Substance: ASPIRIN DL-LYSINE
     Indication: PLATELET AGGREGATION INHIBITION
  6. PLAVIX [Concomitant]
     Active Substance: CLOPIDOGREL BISULFATE
     Indication: PLATELET AGGREGATION INHIBITION
  7. TRANDOLAPRIL. [Concomitant]
     Active Substance: TRANDOLAPRIL
     Indication: HYPERTENSION
  8. XARELTO [Concomitant]
     Active Substance: RIVAROXABAN
     Indication: PROPHYLAXIS
  9. SONOVUE [Suspect]
     Active Substance: SULFUR HEXAFLUORIDE
     Indication: CARDIAC STRESS TEST
     Route: 042
     Dates: start: 20210602, end: 20210602

REACTIONS (1)
  - Cardiac arrest [Recovered/Resolved]

NARRATIVE: CASE EVENT DATE: 20210602
